FAERS Safety Report 11380927 (Version 1)
Quarter: 2015Q3

REPORT INFORMATION
  Report Type: Spontaneous
  Country: US (occurrence: US)
  Receive Date: 20150814
  Receipt Date: 20150814
  Transmission Date: 20151125
  Serious: No
  Sender: FDA-Public Use
  Company Number: US-JNJFOC-20150722987

PATIENT
  Age: 51 Year
  Sex: Female
  Weight: 57.61 kg

DRUGS (3)
  1. ENBREL [Concomitant]
     Active Substance: ETANERCEPT
     Indication: ARTHRITIS
     Route: 065
  2. SIMPONI [Suspect]
     Active Substance: GOLIMUMAB
     Indication: ARTHRITIS
     Route: 058
     Dates: start: 2014
  3. ARNICA MONTANA. [Concomitant]
     Active Substance: ARNICA MONTANA
     Indication: ARTHRITIS
     Route: 065

REACTIONS (5)
  - Underdose [Not Recovered/Not Resolved]
  - Device malfunction [Unknown]
  - Finger deformity [Not Recovered/Not Resolved]
  - Arthritis [Not Recovered/Not Resolved]
  - Accidental exposure to product [Unknown]

NARRATIVE: CASE EVENT DATE: 20150730
